FAERS Safety Report 17147657 (Version 1)
Quarter: 2019Q4

REPORT INFORMATION
  Report Type: Other
  Country: CH (occurrence: CH)
  Receive Date: 20191212
  Receipt Date: 20191212
  Transmission Date: 20200122
  Serious: Yes (Other)
  Sender: FDA-Public Use
  Company Number: CH-GE HEALTHCARE LIFE SCIENCES-2019CSU006202

PATIENT

DRUGS (8)
  1. VISIPAQUE [Suspect]
     Active Substance: IODIXANOL
     Indication: ANAL CANCER RECURRENT
  2. OXALIPLATIN. [Suspect]
     Active Substance: OXALIPLATIN
     Indication: ANAL CANCER RECURRENT
     Dosage: 25.5 MG, QID
     Route: 013
     Dates: start: 20191003, end: 20191004
  3. 5-FLUOROURACIL [Suspect]
     Active Substance: FLUOROURACIL
     Indication: ANAL CANCER RECURRENT
     Dosage: 429 MG, QID
     Route: 013
     Dates: start: 20191003, end: 20191004
  4. METHOTREXATE. [Suspect]
     Active Substance: METHOTREXATE
     Indication: ANAL CANCER RECURRENT
     Dosage: 43 MG, QID
     Route: 013
     Dates: start: 20191003, end: 20191004
  5. MITOMYCINE [Suspect]
     Active Substance: MITOMYCIN
     Indication: ANAL CANCER RECURRENT
     Dosage: 1.872 MG, QID
     Route: 013
     Dates: start: 20191003, end: 20191004
  6. VISIPAQUE [Suspect]
     Active Substance: IODIXANOL
     Indication: X-RAY
     Dosage: 40 ML, SINGLE
     Route: 013
     Dates: start: 20191003, end: 20191003
  7. BLEOMYCINE [Suspect]
     Active Substance: BLEOMYCIN SULFATE
     Indication: ANAL CANCER RECURRENT
     Dosage: 10 MG, UNK
     Route: 042
     Dates: start: 20191003, end: 20191003
  8. VISIPAQUE [Suspect]
     Active Substance: IODIXANOL
     Indication: ARTERIAL CATHETERISATION

REACTIONS (1)
  - Livedo reticularis [Not Recovered/Not Resolved]

NARRATIVE: CASE EVENT DATE: 20191003
